FAERS Safety Report 8975879 (Version 1)
Quarter: 2012Q4

REPORT INFORMATION
  Report Type: 
  Country: US (occurrence: US)
  Receive Date: 20121219
  Receipt Date: 20121219
  Transmission Date: 20130627
  Serious: No
  Sender: FDA-Public Use
  Company Number: US-MYLANLABS-2012S1018014

PATIENT
  Age: 38 Year
  Sex: Female

DRUGS (2)
  1. CITALOPRAM [Suspect]
     Indication: DEPRESSION
     Route: 048
     Dates: start: 201208
  2. CITALOPRAM [Suspect]
     Indication: ANXIETY
     Route: 048
     Dates: start: 201208

REACTIONS (1)
  - Diarrhoea [Not Recovered/Not Resolved]
